FAERS Safety Report 8133778-4 (Version None)
Quarter: 2012Q1

REPORT INFORMATION
  Report Type: 
  Country: None (occurrence: None)
  Receive Date: 20120213
  Receipt Date: 20120213
  Transmission Date: 20120608
  Serious: No
  Sender: FDA-Public Use
  Company Number: None

PATIENT
  Sex: Female
  Weight: 68.038 kg

DRUGS (2)
  1. EXCEDRIN EXTRA STRENGTH TABLETS [Suspect]
     Indication: HEADACHE
     Dosage: 2  TABLETS
     Route: 048
     Dates: start: 20111203, end: 20120103
  2. EXCEDRIN EXTRA STRENGTH TABLETS [Suspect]
     Indication: PAIN
     Dosage: 2  TABLETS
     Route: 048
     Dates: start: 20111203, end: 20120103

REACTIONS (5)
  - FEELING ABNORMAL [None]
  - VOMITING PROJECTILE [None]
  - DISORIENTATION [None]
  - DIZZINESS [None]
  - TREMOR [None]
